FAERS Safety Report 22395421 (Version 3)
Quarter: 2023Q2

REPORT INFORMATION
  Report Type: Report from Study
  Country: US (occurrence: None)
  Receive Date: 20230601
  Receipt Date: 20230622
  Transmission Date: 20230721
  Serious: Yes (Hospitalization)
  Sender: FDA-Public Use
  Company Number: US-ROCHE-3358276

PATIENT
  Age: 51 Year
  Sex: Male
  Weight: 137.2 kg

DRUGS (50)
  1. GLOFITAMAB [Suspect]
     Active Substance: GLOFITAMAB
     Indication: Diffuse large B-cell lymphoma
     Dosage: ON 22/MAY/2023 12:50 PM TO 4:55 PM, HE RECEIVED MOST RECENT DOSE OF GLOFITAMAB PRIOR TO AE/SAE 30 MG
     Route: 042
     Dates: start: 20230425
  2. OBINUTUZUMAB [Suspect]
     Active Substance: OBINUTUZUMAB
     Indication: Diffuse large B-cell lymphoma
     Dosage: ON 21/APR/2023 1:08 PM TO 5:03 PM, HE RECEIVED MOST RECENT DOSE OF OBINUTUZUMAB PRIOR TO AE/SAE 1000
     Route: 042
     Dates: start: 20230421
  3. FLUDEOXYGLUCOSE F-18 [Suspect]
     Active Substance: FLUDEOXYGLUCOSE F-18
     Indication: Diffuse large B-cell lymphoma
     Dosage: ON 17/APR/2023 4:17 PM, HE RECEIVED MOST RECENT DOSE OF FLUDEOXYGLUCOSE PRIOR TO AE/SAE 45 ML.
     Route: 042
     Dates: start: 20230417
  4. LOVENOX [Concomitant]
     Active Substance: ENOXAPARIN SODIUM
     Indication: COVID-19 pneumonia
     Route: 048
     Dates: start: 20230501, end: 20230501
  5. REMDESIVIR [Concomitant]
     Active Substance: REMDESIVIR
     Indication: COVID-19 pneumonia
     Route: 042
     Dates: start: 20230501, end: 20230506
  6. REMDESIVIR [Concomitant]
     Active Substance: REMDESIVIR
     Route: 042
     Dates: start: 20230502, end: 20230506
  7. DEXAMETHASONE [Concomitant]
     Active Substance: DEXAMETHASONE
     Indication: COVID-19 pneumonia
     Route: 048
     Dates: start: 20230501
  8. DEXAMETHASONE [Concomitant]
     Active Substance: DEXAMETHASONE
     Route: 042
     Dates: start: 20230522, end: 20230522
  9. DEXAMETHASONE [Concomitant]
     Active Substance: DEXAMETHASONE
     Route: 042
     Dates: start: 20230425, end: 20230425
  10. DEXAMETHASONE [Concomitant]
     Active Substance: DEXAMETHASONE
     Route: 042
     Dates: start: 20230515, end: 20230515
  11. DEXAMETHASONE [Concomitant]
     Active Substance: DEXAMETHASONE
     Route: 048
     Dates: start: 20230403
  12. CEFEPIME [Concomitant]
     Active Substance: CEFEPIME HYDROCHLORIDE
     Indication: COVID-19 pneumonia
     Route: 042
     Dates: start: 20230501, end: 20230507
  13. FLUCONAZOLE [Concomitant]
     Active Substance: FLUCONAZOLE
     Indication: COVID-19 pneumonia
     Route: 048
     Dates: start: 20230501, end: 20230507
  14. VALACYCLOVIR [Concomitant]
     Active Substance: VALACYCLOVIR HYDROCHLORIDE
     Indication: COVID-19 pneumonia
     Route: 048
     Dates: start: 20230501, end: 20230507
  15. OXYGEN [Concomitant]
     Active Substance: OXYGEN
     Indication: COVID-19 pneumonia
     Route: 055
     Dates: start: 20230501, end: 20230508
  16. GABAPENTIN [Concomitant]
     Active Substance: GABAPENTIN
     Indication: Abdominal wall haematoma
     Route: 048
     Dates: start: 20230503, end: 20230503
  17. GABAPENTIN [Concomitant]
     Active Substance: GABAPENTIN
     Route: 048
     Dates: start: 20230120
  18. FLUCONAZOLE [Concomitant]
     Active Substance: FLUCONAZOLE
     Indication: Abdominal wall haematoma
     Route: 048
     Dates: start: 20230503, end: 20230503
  19. ALLOPURINOL [Concomitant]
     Active Substance: ALLOPURINOL
     Indication: Abdominal wall haematoma
     Route: 048
     Dates: start: 20230503, end: 20230503
  20. ALLOPURINOL [Concomitant]
     Active Substance: ALLOPURINOL
     Indication: Prophylaxis
     Route: 048
     Dates: start: 20230514, end: 20230516
  21. HYDROCHLOROTHIAZIDE [Concomitant]
     Active Substance: HYDROCHLOROTHIAZIDE
     Indication: Abdominal wall haematoma
     Route: 048
     Dates: start: 20230503, end: 20230503
  22. HYDROCHLOROTHIAZIDE [Concomitant]
     Active Substance: HYDROCHLOROTHIAZIDE
     Route: 048
     Dates: start: 20230424
  23. VALACYCLOVIR [Concomitant]
     Active Substance: VALACYCLOVIR HYDROCHLORIDE
     Indication: Abdominal wall haematoma
     Route: 048
     Dates: start: 20230503, end: 20230503
  24. DOCUSATE SODIUM [Concomitant]
     Active Substance: DOCUSATE SODIUM
     Indication: Abdominal wall haematoma
     Route: 048
     Dates: start: 20230503, end: 20230503
  25. SULFAMETHOXAZOLE [Concomitant]
     Active Substance: SULFAMETHOXAZOLE
     Indication: Abdominal wall haematoma
     Route: 048
     Dates: start: 20230503, end: 20230503
  26. SULFAMETHOXAZOLE [Concomitant]
     Active Substance: SULFAMETHOXAZOLE
     Dates: start: 20230424
  27. PANTOPRAZOLE [Concomitant]
     Active Substance: PANTOPRAZOLE
     Indication: Abdominal wall haematoma
     Route: 048
     Dates: start: 20230503, end: 20230503
  28. ACETAMINOPHEN [Concomitant]
     Active Substance: ACETAMINOPHEN
     Route: 048
     Dates: start: 20230522, end: 20230522
  29. ACETAMINOPHEN [Concomitant]
     Active Substance: ACETAMINOPHEN
     Route: 048
     Dates: start: 20230425, end: 20230425
  30. ACETAMINOPHEN [Concomitant]
     Active Substance: ACETAMINOPHEN
     Route: 048
     Dates: start: 20230515, end: 20230515
  31. DIPHENHYDRAMINE [Concomitant]
     Active Substance: DIPHENHYDRAMINE
     Route: 042
     Dates: start: 20230515, end: 20230515
  32. DIPHENHYDRAMINE [Concomitant]
     Active Substance: DIPHENHYDRAMINE
     Route: 042
     Dates: start: 20230425, end: 20230425
  33. DIPHENHYDRAMINE [Concomitant]
     Active Substance: DIPHENHYDRAMINE
     Route: 042
     Dates: start: 20230522, end: 20230522
  34. METHYLPREDNISOLONE [Concomitant]
     Active Substance: METHYLPREDNISOLONE
     Route: 042
     Dates: start: 20230425, end: 20230425
  35. FAMOTIDINE [Concomitant]
     Active Substance: FAMOTIDINE
     Route: 042
     Dates: start: 20230515, end: 20230515
  36. FAMOTIDINE [Concomitant]
     Active Substance: FAMOTIDINE
     Route: 042
     Dates: start: 20230425, end: 20230425
  37. ALBUTEROL [Concomitant]
     Active Substance: ALBUTEROL
     Dosage: 3 PUFF
     Route: 055
     Dates: start: 20230515, end: 20230515
  38. ALBUTEROL [Concomitant]
     Active Substance: ALBUTEROL
     Dosage: 3 PUFF
     Route: 055
     Dates: start: 20230425, end: 20230425
  39. ALBUTEROL [Concomitant]
     Active Substance: ALBUTEROL
     Dosage: ALBUTEROL NEBULIZER
     Route: 055
     Dates: start: 20230515, end: 20230515
  40. ALBUTEROL [Concomitant]
     Active Substance: ALBUTEROL
     Route: 055
     Dates: start: 20230425, end: 20230425
  41. LISINOPRIL [Concomitant]
     Active Substance: LISINOPRIL
     Indication: Hypertension
     Route: 048
     Dates: start: 2022
  42. PANTOPRAZOLE [Concomitant]
     Active Substance: PANTOPRAZOLE
     Indication: Dyspepsia
     Route: 048
     Dates: start: 20230309
  43. BACTRIM [Concomitant]
     Active Substance: SULFAMETHOXAZOLE\TRIMETHOPRIM
     Indication: Prophylaxis
     Route: 048
     Dates: start: 20230126
  44. CHOLECALCIFEROL [Concomitant]
     Active Substance: CHOLECALCIFEROL
     Dosage: 2000 OTHER
     Route: 048
     Dates: start: 20220926
  45. DOCUSATE SODIUM [Concomitant]
     Active Substance: DOCUSATE SODIUM
     Route: 048
     Dates: start: 20230404
  46. ACYCLOVIR [Concomitant]
     Active Substance: ACYCLOVIR
     Indication: Viral infection
     Route: 048
     Dates: start: 20230126, end: 20230525
  47. CLOTRIMAZOLE [Concomitant]
     Active Substance: CLOTRIMAZOLE
     Indication: Candida infection
     Route: 048
     Dates: start: 20220926, end: 20230425
  48. TRIAMCINOLONE [Concomitant]
     Active Substance: TRIAMCINOLONE
     Route: 061
     Dates: start: 20230516
  49. SODIUM CHLORIDE [Concomitant]
     Active Substance: SODIUM CHLORIDE
     Indication: Prophylaxis
     Route: 042
     Dates: start: 20230424
  50. SODIUM CHLORIDE [Concomitant]
     Active Substance: SODIUM CHLORIDE
     Dosage: NORMAL SALINE BOLUS
     Route: 042
     Dates: start: 20230425

REACTIONS (1)
  - Cytokine release syndrome [Recovered/Resolved]

NARRATIVE: CASE EVENT DATE: 20230524
